FAERS Safety Report 8263912-7 (Version None)
Quarter: 2012Q2

REPORT INFORMATION
  Report Type: 
  Country: None (occurrence: None)
  Receive Date: 20120406
  Receipt Date: 20120329
  Transmission Date: 20120825
  Serious: Yes (Life-Threatening, Hospitalization)
  Sender: FDA-Public Use
  Company Number: US-BRISTOL-MYERS SQUIBB COMPANY-16189763

PATIENT
  Age: 67 Year
  Sex: Male
  Weight: 103 kg

DRUGS (17)
  1. FLOMAX [Concomitant]
     Dosage: ALSO ON 02OCT2011
     Dates: start: 20091002
  2. GLUCOSAMINE [Concomitant]
     Dates: start: 20091002
  3. AVODART [Concomitant]
     Dosage: ALSO ON 02OCT2011
     Dates: start: 20091002
  4. BEVACIZUMAB [Suspect]
     Indication: NON-SMALL CELL LUNG CANCER
     Dosage: LAST DOSE RECEIVED ON 16-AUG-2011; TAKEN OFF THE PROTOCOL ON 11-OCT-2011.
     Route: 042
     Dates: start: 20110726, end: 20110930
  5. ONDANSETRON [Concomitant]
     Dates: start: 20110626
  6. PROCHLORPERAZINE [Concomitant]
     Dates: start: 20110726
  7. FOLIC ACID [Concomitant]
     Dates: start: 20110919
  8. CODEINE PHOSPHATE [Concomitant]
     Dates: start: 20110622
  9. ASPIRIN [Concomitant]
     Dates: start: 20091002
  10. DEXAMETHASONE [Concomitant]
     Dates: start: 20110725
  11. PEMETREXED DISODIUM [Suspect]
     Indication: NON-SMALL CELL LUNG CANCER
     Dosage: LAST DOSE:07SEP2011; TAKEN OFF THE PROTOCOL ON 11-OCT-2011.
     Route: 042
     Dates: start: 20110726
  12. VITAMIN B-12 [Concomitant]
     Dates: start: 20110919
  13. AMBIEN [Concomitant]
  14. NORCO [Concomitant]
  15. MILK OF MAGNESIA TAB [Concomitant]
  16. CARBOPLATIN [Suspect]
     Indication: NON-SMALL CELL LUNG CANCER
     Dosage: LAST DOSE:07SEP2011; TAKEN OFF THE PROTOCOL ON 11-OCT-2011. 1DF=6AUC
     Route: 042
     Dates: start: 20110726
  17. ALBUTEROL [Concomitant]

REACTIONS (3)
  - PLEURAL EFFUSION [None]
  - DEEP VEIN THROMBOSIS [None]
  - PULMONARY EMBOLISM [None]
